FAERS Safety Report 16817229 (Version 1)
Quarter: 2019Q4

REPORT INFORMATION
  Report Type: Spontaneous
  Country: US (occurrence: US)
  Receive Date: 20190917
  Receipt Date: 20190917
  Transmission Date: 20200122
  Serious: Yes (Hospitalization)
  Sender: FDA-Public Use
  Company Number: None

PATIENT
  Age: 59 Year
  Sex: Female

DRUGS (11)
  1. DEXAMETHASONE. [Concomitant]
     Active Substance: DEXAMETHASONE
  2. ZARXIO [Suspect]
     Active Substance: FILGRASTIM-SNDZ
     Indication: BRAIN NEOPLASM MALIGNANT
     Route: 058
     Dates: start: 20190803
  3. BACTRIM [Concomitant]
     Active Substance: SULFAMETHOXAZOLE\TRIMETHOPRIM
  4. MULTI-VITAMINS [Concomitant]
  5. KEPPRA [Concomitant]
     Active Substance: LEVETIRACETAM
  6. ACYCLOVIR. [Concomitant]
     Active Substance: ACYCLOVIR
  7. ZARXIO [Suspect]
     Active Substance: FILGRASTIM-SNDZ
     Indication: BRAIN NEOPLASM MALIGNANT
     Route: 058
     Dates: start: 20190803
  8. FLUCONAZOLE. [Concomitant]
     Active Substance: FLUCONAZOLE
  9. COLACE [Concomitant]
     Active Substance: DOCUSATE SODIUM
  10. SENNA [Concomitant]
     Active Substance: SENNA LEAF\SENNOSIDES\SENNOSIDES A AND B
  11. GABAPENTIN. [Concomitant]
     Active Substance: GABAPENTIN

REACTIONS (1)
  - Stem cell transplant [None]

NARRATIVE: CASE EVENT DATE: 20190910
